FAERS Safety Report 11760882 (Version 1)
Quarter: 2015Q4

REPORT INFORMATION
  Report Type: Report from Study
  Country: GB (occurrence: GB)
  Receive Date: 20151120
  Receipt Date: 20151120
  Transmission Date: 20160304
  Serious: Yes (Hospitalization)
  Sender: FDA-Public Use
  Company Number: GB-ABBVIE-15K-167-1499499-00

PATIENT
  Age: 76 Year
  Sex: Male

DRUGS (2)
  1. HUMIRA [Suspect]
     Active Substance: ADALIMUMAB
     Route: 058
  2. HUMIRA [Suspect]
     Active Substance: ADALIMUMAB
     Indication: PRODUCT USED FOR UNKNOWN INDICATION
     Route: 058

REACTIONS (5)
  - General physical health deterioration [Unknown]
  - Memory impairment [Unknown]
  - Drug dose omission [Unknown]
  - Hospitalisation [Unknown]
  - Drug dose omission [Unknown]

NARRATIVE: CASE EVENT DATE: 20151106
